FAERS Safety Report 7712555-X (Version None)
Quarter: 2011Q3

REPORT INFORMATION
  Report Type: 
  Country: None (occurrence: None)
  Receive Date: 20110826
  Receipt Date: 20110816
  Transmission Date: 20111222
  Serious: Yes (Life-Threatening, Hospitalization, Other)
  Sender: FDA-Public Use
  Company Number: NL-SANOFI-AVENTIS-2011SA052839

PATIENT
  Sex: Male
  Weight: 80 kg

DRUGS (9)
  1. ROSUVASTATIN [Concomitant]
     Route: 048
     Dates: start: 20070101
  2. ACETAMINOPHEN [Concomitant]
     Route: 048
     Dates: start: 20070101
  3. CLOPIDOGREL [Concomitant]
     Route: 048
     Dates: start: 20070101
  4. PANTOPRAZOLE [Concomitant]
     Route: 048
     Dates: start: 20070101
  5. DOXYCYCLINE [Concomitant]
     Route: 048
     Dates: start: 20101201
  6. ACETYLSALICYLZUUR [Concomitant]
     Route: 048
     Dates: start: 20070101
  7. PLAQUENIL [Suspect]
     Indication: Q FEVER
     Route: 048
     Dates: start: 20101201, end: 20110725
  8. FOLIC ACID [Concomitant]
     Route: 048
     Dates: start: 20070101
  9. TRAMADOL HCL [Concomitant]
     Route: 048
     Dates: start: 20070101

REACTIONS (2)
  - CARDIOMYOPATHY [None]
  - ARRHYTHMIA [None]
